FAERS Safety Report 6435015-5 (Version None)
Quarter: 2009Q4

REPORT INFORMATION
  Report Type: 
  Country: None (occurrence: None)
  Receive Date: 20091110
  Receipt Date: 20091104
  Transmission Date: 20100525
  Serious: Yes (Death, Life-Threatening, Hospitalization, Other)
  Sender: FDA-Public Use
  Company Number: PHHY2009JP48265

PATIENT
  Sex: Male

DRUGS (14)
  1. DIOVAN T30230+TAB+HY [Suspect]
     Dosage: 80 MG PER DAY
     Route: 048
     Dates: start: 20080401, end: 20080426
  2. LANDEL [Concomitant]
     Indication: HYPERTENSION
     Dosage: 40 MG PER DAY
     Route: 048
     Dates: start: 20070511, end: 20080426
  3. CARDENALIN [Concomitant]
     Indication: HYPERTENSION
     Dosage: 4 MG PER DAY
     Route: 048
     Dates: start: 20071211, end: 20080416
  4. SALOBEL [Concomitant]
     Dosage: 50 MG PER DAY
     Route: 048
     Dates: start: 20060422, end: 20080426
  5. LASIX [Concomitant]
     Dosage: 80 MG PER DAY
     Route: 048
     Dates: start: 20060207, end: 20080426
  6. BUFFERIN [Concomitant]
     Dosage: 162 MG PER DAY
     Route: 048
     Dates: start: 20010501, end: 20080426
  7. PERSANTIN-L [Concomitant]
     Dosage: 300 MG PER DAY
     Route: 048
     Dates: start: 20060422, end: 20080426
  8. FERROMIA [Concomitant]
     Dosage: 100 MG PER DAY
     Route: 048
     Dates: start: 20060422, end: 20080426
  9. JUSO [Concomitant]
     Dosage: 1.5 G PER DAY
     Route: 048
     Dates: start: 20060123, end: 20080426
  10. LIPOVAS [Concomitant]
     Dosage: 5 MG PER DAY
     Route: 048
     Dates: start: 20010501, end: 20080426
  11. LANSOPRAZOLE [Concomitant]
     Dosage: 15 MG PER DAY
     Route: 048
     Dates: start: 20060620, end: 20080426
  12. KINEDAK [Concomitant]
     Dosage: 150MG PER DAY
     Route: 048
     Dates: start: 20060822, end: 20080426
  13. LENDORMIN [Concomitant]
     Dosage: 0.25 MG PER DAY
     Route: 048
     Dates: start: 20071030, end: 20080426
  14. NOVORAPID [Concomitant]
     Dosage: 21 IU
     Route: 058
     Dates: start: 20040315, end: 20080426

REACTIONS (11)
  - BLOOD PRESSURE DECREASED [None]
  - CARDIAC FAILURE [None]
  - CONVULSION [None]
  - DECREASED APPETITE [None]
  - GASTROINTESTINAL HAEMORRHAGE [None]
  - GENERAL PHYSICAL HEALTH DETERIORATION [None]
  - MALAISE [None]
  - PNEUMONIA [None]
  - RENAL FAILURE CHRONIC [None]
  - RESPIRATORY ARREST [None]
  - SEPSIS [None]
